FAERS Safety Report 9342575 (Version 1)
Quarter: 2013Q2

REPORT INFORMATION
  Report Type: Spontaneous
  Country: US (occurrence: US)
  Receive Date: 20130611
  Receipt Date: 20130611
  Transmission Date: 20140414
  Serious: Yes (Other)
  Sender: FDA-Public Use
  Company Number: US-BRISTOL-MYERS SQUIBB COMPANY-18973065

PATIENT
  Sex: Male

DRUGS (1)
  1. ABILIFY TABS 2 MG [Suspect]

REACTIONS (1)
  - Left ventricular hypertrophy [Unknown]
